FAERS Safety Report 18169025 (Version 4)
Quarter: 2021Q3

REPORT INFORMATION
  Report Type: Spontaneous
  Country: US (occurrence: US)
  Receive Date: 20200819
  Receipt Date: 20210827
  Transmission Date: 20211014
  Serious: Yes (Other)
  Sender: FDA-Public Use
  Company Number: US-PFIZER INC-2020196389

PATIENT
  Age: 75 Year
  Sex: Female
  Weight: 65.77 kg

DRUGS (1)
  1. IBRANCE [Suspect]
     Active Substance: PALBOCICLIB
     Indication: BREAST CANCER METASTATIC
     Dosage: 100 MG, CYCLIC (ONCE A DAY 21 DAYS ONE WEEK OFF)
     Dates: start: 201807, end: 2020

REACTIONS (8)
  - Blood creatinine increased [Unknown]
  - White blood cell count decreased [Not Recovered/Not Resolved]
  - Nervousness [Unknown]
  - Renal impairment [Unknown]
  - Dyspnoea [Unknown]
  - Anxiety [Unknown]
  - Fatigue [Unknown]
  - Anaemia [Unknown]
